FAERS Safety Report 10187433 (Version 2)
Quarter: 2014Q3

REPORT INFORMATION
  Report Type: Spontaneous
  Country: AU (occurrence: None)
  Receive Date: 20140520
  Receipt Date: 20140722
  Transmission Date: 20150326
  Serious: Yes (Life-Threatening, Hospitalization, Other)
  Sender: FDA-Public Use
  Company Number: AUR-APL-2014-05718

PATIENT
  Age: 0 Day
  Sex: Male

DRUGS (4)
  1. NIFEDIPINE (NIFEDIPINE) (NIFEDIPINE) [Concomitant]
     Active Substance: NIFEDIPINE
  2. FLUOXETINE HYDROCHLORIDE (FLUOXETINE HYDROCHLORIDE) [Suspect]
     Active Substance: FLUOXETINE HYDROCHLORIDE
     Indication: PRODUCT USED FOR UNKNOWN INDICATION
     Route: 064
  3. QUETIAPINE FILM-COATED TABLET (QUETIAPINE) FILM-COATED TABLET, UNKNOWN? [Suspect]
     Active Substance: QUETIAPINE
     Indication: PRODUCT USED FOR UNKNOWN INDICATION
     Route: 064
  4. CELESTONE [Concomitant]
     Active Substance: BETAMETHASONE

REACTIONS (10)
  - Somnolence [None]
  - Somnolence neonatal [None]
  - Foetal distress syndrome [None]
  - Maternal drugs affecting foetus [None]
  - Feeding disorder neonatal [None]
  - Caesarean section [None]
  - Tremor neonatal [None]
  - Tachycardia foetal [None]
  - Drug withdrawal syndrome neonatal [None]
  - Foetal exposure during pregnancy [None]

NARRATIVE: CASE EVENT DATE: 20120920
